FAERS Safety Report 8376696-9 (Version None)
Quarter: 2012Q1

REPORT INFORMATION
  Report Type: 
  Country: None (occurrence: None)
  Receive Date: 20120323
  Receipt Date: 20110208
  Transmission Date: 20120608
  Serious: Yes (Disabling)
  Sender: FDA-Public Use
  Company Number: 163-21880-10121151

PATIENT
  Age: 64 Year
  Sex: Female

DRUGS (6)
  1. VELCADE [Concomitant]
  2. REVLIMID [Suspect]
     Indication: MULTIPLE MYELOMA
     Dosage: 25 MG, D 1-21 EVERY 28 D, PO, 25 MG, EVERY OTHER DAY, PO, 20 MG, DAILY X 21 EVERY 28 D, PO
     Route: 048
     Dates: start: 20081222, end: 20090316
  3. REVLIMID [Suspect]
     Indication: MULTIPLE MYELOMA
     Dosage: 25 MG, D 1-21 EVERY 28 D, PO, 25 MG, EVERY OTHER DAY, PO, 20 MG, DAILY X 21 EVERY 28 D, PO
     Route: 048
     Dates: end: 20100801
  4. REVLIMID [Suspect]
     Indication: MULTIPLE MYELOMA
     Dosage: 25 MG, D 1-21 EVERY 28 D, PO, 25 MG, EVERY OTHER DAY, PO, 20 MG, DAILY X 21 EVERY 28 D, PO
     Route: 048
     Dates: start: 20090824
  5. DEXAMETHASONE [Concomitant]
  6. CYTOXAN [Concomitant]

REACTIONS (2)
  - NEOPLASM PROGRESSION [None]
  - MULTIPLE MYELOMA [None]
